FAERS Safety Report 23415622 (Version 9)
Quarter: 2024Q4

REPORT INFORMATION
  Report Type: Spontaneous
  Country: US (occurrence: US)
  Receive Date: 20240118
  Receipt Date: 20241224
  Transmission Date: 20250115
  Serious: Yes (Hospitalization, Other)
  Sender: SANOFI AVENTIS
  Company Number: US-SA-SAC20231004001308

PATIENT
  Age: 59 Year
  Sex: Male

DRUGS (3)
  1. DUPIXENT [Suspect]
     Active Substance: DUPILUMAB
     Indication: Asthma
     Dosage: 600 MG, 1X
     Route: 058
     Dates: start: 202308, end: 202308
  2. DUPIXENT [Suspect]
     Active Substance: DUPILUMAB
     Indication: Dermatitis atopic
     Dosage: 300 MG, QOW
     Route: 058
     Dates: start: 2023, end: 202410
  3. DUPIXENT [Suspect]
     Active Substance: DUPILUMAB
     Dosage: 300 MG, QOW
     Route: 058
     Dates: start: 2024

REACTIONS (14)
  - Spinal cord compression [Not Recovered/Not Resolved]
  - Burning sensation [Unknown]
  - Pain in extremity [Unknown]
  - Chronic obstructive pulmonary disease [Unknown]
  - Hospitalisation [Unknown]
  - Peripheral swelling [Unknown]
  - Localised infection [Unknown]
  - Condition aggravated [Unknown]
  - Fall [Unknown]
  - Gait inability [Unknown]
  - Malaise [Unknown]
  - Asthma [Unknown]
  - Dyspnoea [Unknown]
  - Therapeutic response shortened [Unknown]

NARRATIVE: CASE EVENT DATE: 20230101
